FAERS Safety Report 17116815 (Version 1)
Quarter: 2019Q4

REPORT INFORMATION
  Report Type: Report from Study
  Country: US (occurrence: US)
  Receive Date: 20191205
  Receipt Date: 20191205
  Transmission Date: 20200122
  Serious: No
  Sender: FDA-Public Use
  Company Number: NVSC2019US035725

PATIENT
  Age: 81 Year
  Sex: Female

DRUGS (1)
  1. ENTRESTO [Suspect]
     Active Substance: SACUBITRIL\VALSARTAN
     Indication: CARDIAC DISORDER
     Dosage: 1 DF (24 MG SACUBITRIL AND 26 MG VALSARTAN), BID
     Route: 048
     Dates: start: 20191105

REACTIONS (7)
  - Rhinorrhoea [Not Recovered/Not Resolved]
  - Nasopharyngitis [Recovering/Resolving]
  - Energy increased [Not Recovered/Not Resolved]
  - Dry mouth [Not Recovered/Not Resolved]
  - Dysphonia [Not Recovered/Not Resolved]
  - Throat irritation [Not Recovered/Not Resolved]
  - Product use in unapproved indication [Unknown]

NARRATIVE: CASE EVENT DATE: 20191105
